FAERS Safety Report 23179981 (Version 5)
Quarter: 2024Q2

REPORT INFORMATION
  Report Type: Report from Study
  Country: US (occurrence: US)
  Receive Date: 20231114
  Receipt Date: 20240527
  Transmission Date: 20240716
  Serious: Yes (Hospitalization)
  Sender: FDA-Public Use
  Company Number: US-ABBVIE-5488342

PATIENT
  Sex: Female
  Weight: 51.255 kg

DRUGS (3)
  1. RINVOQ [Suspect]
     Active Substance: UPADACITINIB
     Indication: Rheumatoid arthritis
     Route: 048
     Dates: start: 2021
  2. RINVOQ [Suspect]
     Active Substance: UPADACITINIB
     Indication: Rheumatoid arthritis
     Route: 048
     Dates: start: 20240202
  3. NEOSPORIN [Concomitant]
     Active Substance: BACITRACIN ZINC\NEOMYCIN SULFATE\POLYMYXIN B SULFATE
     Indication: Scratch

REACTIONS (14)
  - Gastric haemorrhage [Recovering/Resolving]
  - Hypoaesthesia [Unknown]
  - Joint range of motion decreased [Not Recovered/Not Resolved]
  - Shoulder fracture [Not Recovered/Not Resolved]
  - Oedema peripheral [Not Recovered/Not Resolved]
  - Arthralgia [Not Recovered/Not Resolved]
  - Scratch [Not Recovered/Not Resolved]
  - Animal scratch [Not Recovered/Not Resolved]
  - Malaise [Unknown]
  - Rash papular [Not Recovered/Not Resolved]
  - Loss of consciousness [Unknown]
  - Fall [Unknown]
  - Fatigue [Unknown]
  - Full blood count abnormal [Unknown]

NARRATIVE: CASE EVENT DATE: 20230101
